FAERS Safety Report 12759373 (Version 1)
Quarter: 2016Q3

REPORT INFORMATION
  Report Type: Spontaneous
  Country: US (occurrence: US)
  Receive Date: 20160919
  Receipt Date: 20160919
  Transmission Date: 20161109
  Serious: No
  Sender: FDA-Public Use
  Company Number: US-MEDA-2016090019

PATIENT
  Sex: Female
  Weight: 80 kg

DRUGS (9)
  1. HYDROCHLOROTHIAZIDE. [Concomitant]
     Active Substance: HYDROCHLOROTHIAZIDE
  2. ASPIRIN. [Concomitant]
     Active Substance: ASPIRIN
  3. MUCINEX [Concomitant]
     Active Substance: GUAIFENESIN
  4. DIRAN [Concomitant]
  5. ZYRTEC [Concomitant]
     Active Substance: CETIRIZINE HYDROCHLORIDE
  6. SINGULAIR [Concomitant]
     Active Substance: MONTELUKAST SODIUM
  7. COREG [Concomitant]
     Active Substance: CARVEDILOL
  8. ASTEPRO [Suspect]
     Active Substance: AZELASTINE HYDROCHLORIDE
     Indication: RHINITIS ALLERGIC
  9. FENOFIBRATE. [Concomitant]
     Active Substance: FENOFIBRATE

REACTIONS (5)
  - Sputum discoloured [Unknown]
  - Cough [Unknown]
  - Sneezing [Unknown]
  - Nasal discomfort [Unknown]
  - Dysgeusia [Unknown]

NARRATIVE: CASE EVENT DATE: 2015
